FAERS Safety Report 26136682 (Version 1)
Quarter: 2025Q4

REPORT INFORMATION
  Report Type: Spontaneous
  Country: EU (occurrence: EU)
  Receive Date: 20251209
  Receipt Date: 20251209
  Transmission Date: 20260117
  Serious: Yes (Hospitalization)
  Sender: MYLAN
  Company Number: None

PATIENT
  Age: 77 Year
  Sex: Male
  Weight: 70 kg

DRUGS (16)
  1. METFORMIN [Interacting]
     Active Substance: METFORMIN HYDROCHLORIDE
     Indication: Type 2 diabetes mellitus
     Dosage: 1 GRAM, BID (2 GRAM, QD, 1 G X2/D)
     Dates: end: 20200309
  2. METFORMIN [Interacting]
     Active Substance: METFORMIN HYDROCHLORIDE
     Dosage: 1 GRAM, BID (2 GRAM, QD, 1 G X2/D)
     Dates: end: 20200309
  3. METFORMIN [Interacting]
     Active Substance: METFORMIN HYDROCHLORIDE
     Dosage: 1 GRAM, BID (2 GRAM, QD, 1 G X2/D)
     Route: 048
     Dates: end: 20200309
  4. METFORMIN [Interacting]
     Active Substance: METFORMIN HYDROCHLORIDE
     Dosage: 1 GRAM, BID (2 GRAM, QD, 1 G X2/D)
     Route: 048
     Dates: end: 20200309
  5. METFORMIN [Interacting]
     Active Substance: METFORMIN HYDROCHLORIDE
     Dosage: 1 GRAM, TID (3 GRAM, QD, 1 G X3/D)
     Dates: start: 20200310, end: 20200405
  6. METFORMIN [Interacting]
     Active Substance: METFORMIN HYDROCHLORIDE
     Dosage: 1 GRAM, TID (3 GRAM, QD, 1 G X3/D)
     Dates: start: 20200310, end: 20200405
  7. METFORMIN [Interacting]
     Active Substance: METFORMIN HYDROCHLORIDE
     Dosage: 1 GRAM, TID (3 GRAM, QD, 1 G X3/D)
     Route: 048
     Dates: start: 20200310, end: 20200405
  8. METFORMIN [Interacting]
     Active Substance: METFORMIN HYDROCHLORIDE
     Dosage: 1 GRAM, TID (3 GRAM, QD, 1 G X3/D)
     Route: 048
     Dates: start: 20200310, end: 20200405
  9. FUROSEMIDE [Interacting]
     Active Substance: FUROSEMIDE
     Indication: Cardiac failure
     Dosage: 40 MILLIGRAM, QD (40 MG/D)
     Dates: end: 20200322
  10. FUROSEMIDE [Interacting]
     Active Substance: FUROSEMIDE
     Dosage: 40 MILLIGRAM, QD (40 MG/D)
     Dates: end: 20200322
  11. FUROSEMIDE [Interacting]
     Active Substance: FUROSEMIDE
     Dosage: 40 MILLIGRAM, QD (40 MG/D)
     Route: 048
     Dates: end: 20200322
  12. FUROSEMIDE [Interacting]
     Active Substance: FUROSEMIDE
     Dosage: 40 MILLIGRAM, QD (40 MG/D)
     Route: 048
     Dates: end: 20200322
  13. FUROSEMIDE [Interacting]
     Active Substance: FUROSEMIDE
     Dosage: 120 MILLIGRAM, QD (60 MG X 2/D)
     Dates: start: 20200323, end: 20200405
  14. FUROSEMIDE [Interacting]
     Active Substance: FUROSEMIDE
     Dosage: 120 MILLIGRAM, QD (60 MG X 2/D)
     Dates: start: 20200323, end: 20200405
  15. FUROSEMIDE [Interacting]
     Active Substance: FUROSEMIDE
     Dosage: 120 MILLIGRAM, QD (60 MG X 2/D)
     Route: 048
     Dates: start: 20200323, end: 20200405
  16. FUROSEMIDE [Interacting]
     Active Substance: FUROSEMIDE
     Dosage: 120 MILLIGRAM, QD (60 MG X 2/D)
     Route: 048
     Dates: start: 20200323, end: 20200405

REACTIONS (3)
  - Lactic acidosis [Recovered/Resolved]
  - Drug level above therapeutic [Recovered/Resolved]
  - Drug interaction [Recovered/Resolved]

NARRATIVE: CASE EVENT DATE: 20200405
